FAERS Safety Report 5688991-2 (Version None)
Quarter: 2008Q1

REPORT INFORMATION
  Report Type: 
  Country: None (occurrence: None)
  Receive Date: 20080331
  Receipt Date: 20080324
  Transmission Date: 20080703
  Serious: Yes (Disabling)
  Sender: FDA-Public Use
  Company Number: A0716894A

PATIENT
  Age: 66 Year
  Sex: Male

DRUGS (8)
  1. IMITREX [Suspect]
     Indication: MIGRAINE
     Dosage: 100MG AS REQUIRED
     Route: 048
     Dates: start: 20050101
  2. ZOCOR [Concomitant]
  3. XANAX [Concomitant]
  4. PHENERGAN HCL [Concomitant]
  5. VICODIN [Concomitant]
  6. FIORINAL [Concomitant]
  7. DILTIAZEM [Concomitant]
  8. LISINOPRIL [Concomitant]

REACTIONS (2)
  - DRUG INEFFECTIVE [None]
  - MIGRAINE [None]
